FAERS Safety Report 6094587-3 (Version None)
Quarter: 2009Q1

REPORT INFORMATION
  Report Type: 
  Country: None (occurrence: None)
  Receive Date: 20090224
  Receipt Date: 20090212
  Transmission Date: 20090719
  Serious: Yes (Hospitalization)
  Sender: FDA-Public Use
  Company Number: 200824491GPV

PATIENT
  Age: 67 Year

DRUGS (2)
  1. FLUDARABINE PHOSPHATE [Suspect]
     Indication: CHRONIC LYMPHOCYTIC LEUKAEMIA
     Dosage: 40 MG/M2, ORAL; 40 MIU/M2, ORAL
     Route: 048
     Dates: start: 20070525, end: 20070627
  2. FLUDARABINE PHOSPHATE [Suspect]
     Indication: CHRONIC LYMPHOCYTIC LEUKAEMIA
     Dosage: 40 MG/M2, ORAL; 40 MIU/M2, ORAL
     Route: 048
     Dates: start: 20070601

REACTIONS (1)
  - TRANSIENT ISCHAEMIC ATTACK [None]
